FAERS Safety Report 5965646-8 (Version None)
Quarter: 2008Q4

REPORT INFORMATION
  Report Type: 
  Country: None (occurrence: None)
  Receive Date: 20081125
  Receipt Date: 20081113
  Transmission Date: 20090506
  Serious: Yes (Other)
  Sender: FDA-Public Use
  Company Number: ES-ROCHE-592188

PATIENT
  Sex: Female
  Weight: 50 kg

DRUGS (5)
  1. BONIVA [Suspect]
     Indication: OSTEOPOROSIS
     Dosage: DOSAGE REGIMEN: UNK/ MONTH.
     Route: 048
     Dates: start: 20071105
  2. CELLCEPT [Concomitant]
     Indication: RENAL TRANSPLANT
     Dosage: DOSAGE REGIMEN: UNK/DAY.
     Route: 048
  3. PREDNISONE TAB [Concomitant]
     Indication: RENAL TRANSPLANT
     Dosage: DOSAGE REGIMEN: UNK/DAY.
     Route: 048
  4. PROGRAF [Concomitant]
     Indication: RENAL TRANSPLANT
     Dosage: DOSAGE REGIMEN: UNK/DAY.
     Route: 048
  5. ADALAT [Concomitant]
     Indication: RENAL TRANSPLANT
     Dosage: DOSAGE REGIMEN: UNK/DAY.
     Route: 048

REACTIONS (2)
  - RETINAL PIGMENTATION [None]
  - RETINITIS PIGMENTOSA [None]
